FAERS Safety Report 19452127 (Version 1)
Quarter: 2021Q2

REPORT INFORMATION
  Report Type: Spontaneous
  Country: US (occurrence: US)
  Receive Date: 20210623
  Receipt Date: 20210623
  Transmission Date: 20210717
  Serious: No
  Sender: FDA-Public Use
  Company Number: US-GLENMARK PHARMACEUTICALS-2020GMK050039

PATIENT

DRUGS (1)
  1. MOMETASONE FUROATE CREAM USP, 0.1% [Suspect]
     Active Substance: MOMETASONE FUROATE
     Indication: PSORIASIS
     Dosage: UNK, HS (ONCE AT NIGHT ON FACE/CHEEKS)
     Route: 050

REACTIONS (2)
  - Product administered at inappropriate site [Unknown]
  - No adverse event [Unknown]
